FAERS Safety Report 23604248 (Version 2)
Quarter: 2024Q3

REPORT INFORMATION
  Report Type: Spontaneous
  Country: US (occurrence: US)
  Receive Date: 20240307
  Receipt Date: 20240924
  Transmission Date: 20241016
  Serious: Yes (Other)
  Sender: DR REDDYS
  Company Number: US-E2BLSMVVAL-SPO/USA/24/0003737

PATIENT
  Age: 16 Year

DRUGS (1)
  1. ACCUTANE [Suspect]
     Active Substance: ISOTRETINOIN
     Indication: Acne
     Route: 048
     Dates: start: 20240131

REACTIONS (4)
  - Asthma [Recovered/Resolved]
  - Psoriasis [Recovered/Resolved]
  - Pneumonia [Recovered/Resolved]
  - Chapped lips [Recovered/Resolved]

NARRATIVE: CASE EVENT DATE: 20240201
